FAERS Safety Report 5424207-X (Version None)
Quarter: 2007Q3

REPORT INFORMATION
  Report Type: 
  Country: None (occurrence: None)
  Receive Date: 20070823
  Receipt Date: 20070813
  Transmission Date: 20080115
  Serious: Yes (Other)
  Sender: FDA-Public Use
  Company Number: JP-PFIZER INC-2007067553

PATIENT
  Age: 58 Year
  Sex: Male

DRUGS (6)
  1. IDAMYCIN [Suspect]
     Dosage: TEXT:TDD:18 MG
     Dates: start: 20070804, end: 20070806
  2. CYLOCIDE [Concomitant]
  3. POLYMYXIN B SULFATE [Concomitant]
  4. DIFLUCAN [Concomitant]
  5. ZANTAC 150 [Concomitant]
  6. ISODINE [Concomitant]

REACTIONS (1)
  - BLOOD BILIRUBIN INCREASED [None]
